FAERS Safety Report 6410697-2 (Version None)
Quarter: 2009Q4

REPORT INFORMATION
  Report Type: 
  Country: None (occurrence: None)
  Receive Date: 20091022
  Receipt Date: 20091014
  Transmission Date: 20100525
  Serious: Yes (Death, Life-Threatening, Hospitalization)
  Sender: FDA-Public Use
  Company Number: JP-NOVOPROD-290795

PATIENT
  Sex: Female
  Weight: 72 kg

DRUGS (9)
  1. LEVEMIR CHU PENFILL [Suspect]
     Indication: TYPE 2 DIABETES MELLITUS
     Dosage: 10 IU, QD
     Route: 058
     Dates: start: 20090121
  2. LEVEMIR CHU PENFILL [Suspect]
     Dosage: 12 IU, QD
     Route: 058
  3. PENFILL R CHU [Suspect]
     Indication: TYPE 2 DIABETES MELLITUS
     Dosage: 34 IU, QD
     Route: 058
     Dates: start: 20040707
  4. METFORMIN HCL [Concomitant]
     Dosage: 250 MG, UNK
     Route: 048
     Dates: start: 20060628
  5. AMARYL [Concomitant]
     Dosage: 3 MG, UNK
     Route: 048
     Dates: start: 20010522, end: 20080821
  6. AMARYL [Concomitant]
     Dosage: 1 MG, UNK
     Route: 048
     Dates: start: 20080822
  7. MICARDIS [Concomitant]
     Dosage: 40 MG, UNK
     Route: 048
     Dates: start: 20060801
  8. MEVALOTIN [Concomitant]
     Dosage: 5 MG, UNK
     Route: 048
  9. EPINEPHRINE [Concomitant]
     Dates: start: 20090621

REACTIONS (5)
  - CARDIAC ARREST [None]
  - CARDIAC FAILURE ACUTE [None]
  - COMA SCALE ABNORMAL [None]
  - INFECTION [None]
  - LUNG CONSOLIDATION [None]
